FAERS Safety Report 5664057-2 (Version None)
Quarter: 2008Q1

REPORT INFORMATION
  Report Type: 
  Country: None (occurrence: None)
  Receive Date: 20080314
  Receipt Date: 20080311
  Transmission Date: 20080703
  Serious: Yes (Hospitalization)
  Sender: FDA-Public Use
  Company Number: JP-TEVA-168643USA

PATIENT
  Age: 13 Year

DRUGS (1)
  1. PIMOZIDE TABLETS [Suspect]
     Indication: AUTISM
     Route: 048
     Dates: start: 20080303, end: 20080301

REACTIONS (1)
  - DYSPHAGIA [None]
